FAERS Safety Report 4990816-5 (Version None)
Quarter: 2006Q2

REPORT INFORMATION
  Report Type: 
  Country: None (occurrence: None)
  Receive Date: 20060427
  Receipt Date: 20060417
  Transmission Date: 20061013
  Serious: Yes (Other)
  Sender: FDA-Public Use
  Company Number: 2006-01509

PATIENT
  Age: 33 Year
  Sex: Female

DRUGS (1)
  1. CLOMIPRAMINE HCL [Suspect]
     Indication: AFFECTIVE DISORDER
     Dosage: UNKNOWN DOSE TAKEN FOR 1 MONTH, ORAL
     Route: 048
     Dates: start: 20050101, end: 20050101

REACTIONS (4)
  - DRUG HYPERSENSITIVITY [None]
  - HEPATITIS ACUTE [None]
  - HUMAN HERPESVIRUS 6 INFECTION [None]
  - RASH [None]
